FAERS Safety Report 14211185 (Version 1)
Quarter: 2017Q4

REPORT INFORMATION
  Report Type: Report from Study
  Country: CA (occurrence: CA)
  Receive Date: 20171121
  Receipt Date: 20171121
  Transmission Date: 20180321
  Serious: Yes (Death, Hospitalization)
  Sender: FDA-Public Use
  Company Number: CA-PFIZER INC-2017473197

PATIENT
  Age: 62 Year
  Sex: Female

DRUGS (22)
  1. FLUCONAZOLE. [Concomitant]
     Active Substance: FLUCONAZOLE
     Indication: OROPHARYNGEAL PAIN
     Dosage: UNK
     Dates: start: 20170921
  2. ATENOLOL. [Concomitant]
     Active Substance: ATENOLOL
     Indication: HYPERTENSION
     Dosage: UNK
     Dates: start: 201506
  3. ACETYLSALICYLIC ACID [Concomitant]
     Active Substance: ASPIRIN
     Indication: HYPERTENSION
     Dosage: UNK
     Dates: start: 199506
  4. VITAMIN D /00107901/ [Concomitant]
     Active Substance: ERGOCALCIFEROL
     Indication: SUPPLEMENTATION THERAPY
     Dosage: UNK
     Dates: start: 201208
  5. LEVOFLOXACIN. [Concomitant]
     Active Substance: LEVOFLOXACIN
     Indication: INFECTION PROPHYLAXIS
     Dosage: UNK
     Dates: start: 20170915
  6. FULVESTRANT. [Concomitant]
     Active Substance: FULVESTRANT
     Indication: BREAST CANCER
     Dosage: 500 MG, 28 DAY CYCLE
     Route: 030
     Dates: start: 20160505, end: 20170921
  7. DALTEPARIN [Concomitant]
     Active Substance: DALTEPARIN
     Indication: ANTICOAGULANT THERAPY
     Dosage: UNK
     Dates: start: 20171007, end: 20171009
  8. CALCIUM [Concomitant]
     Active Substance: CALCIUM
     Indication: SUPPLEMENTATION THERAPY
     Dosage: UNK
     Dates: start: 201208
  9. PROCHLORPERAZINE. [Concomitant]
     Active Substance: PROCHLORPERAZINE
     Indication: NAUSEA
     Dosage: UNK
     Dates: start: 20170818
  10. PALBOCICLIB [Suspect]
     Active Substance: PALBOCICLIB
     Indication: BREAST CANCER
     Dosage: 75 MG, 28 DAY CYCLE
     Route: 048
     Dates: start: 20160505, end: 20171006
  11. METFORMIN [Concomitant]
     Active Substance: METFORMIN HYDROCHLORIDE
     Indication: DIABETES MELLITUS
     Dosage: UNK
     Dates: start: 2006
  12. ONDANSETRON [Concomitant]
     Active Substance: ONDANSETRON
     Indication: NAUSEA
     Dosage: UNK
     Dates: start: 20171007, end: 20171009
  13. NORVASC [Concomitant]
     Active Substance: AMLODIPINE BESYLATE
     Indication: HYPERTENSION
     Dosage: UNK
     Dates: start: 20160629
  14. TYLENOL [Concomitant]
     Active Substance: ACETAMINOPHEN
     Indication: BACK PAIN
     Dosage: UNK
     Dates: start: 20170818
  15. CLAVULIN /00756801/ [Concomitant]
     Active Substance: AMOXICILLIN\CLAVULANIC ACID
     Indication: FEBRILE NEUTROPENIA
     Dosage: UNK
     Dates: start: 20171008, end: 20171012
  16. XGEVA [Concomitant]
     Active Substance: DENOSUMAB
     Indication: SUPPLEMENTATION THERAPY
     Dosage: UNK
     Dates: start: 201510
  17. TYLENOL WITH CODEINE [Concomitant]
     Active Substance: ACETAMINOPHEN\CODEINE PHOSPHATE
     Indication: BONE PAIN
     Dosage: UNK
     Dates: start: 201510
  18. CANDESARTAN. [Concomitant]
     Active Substance: CANDESARTAN
     Indication: HYPERTENSION
     Dosage: UNK
     Dates: start: 20160802
  19. CHLORHEXIDINE [Concomitant]
     Active Substance: CHLORHEXIDINE
     Indication: OSTEONECROSIS OF JAW
     Dosage: UNK
     Dates: start: 20170531
  20. MINOCYCLINE [Concomitant]
     Active Substance: MINOCYCLINE\MINOCYCLINE HYDROCHLORIDE
     Indication: OSTEONECROSIS OF JAW
     Dosage: UNK
     Dates: start: 20170531
  21. HYDROMORPHONE [Concomitant]
     Active Substance: HYDROMORPHONE
     Indication: BACK PAIN
     Dosage: UNK
     Dates: start: 20170818
  22. INSULIN [Concomitant]
     Active Substance: INSULIN NOS
     Indication: DIABETES MELLITUS
     Dosage: UNK
     Dates: start: 20171007, end: 20171009

REACTIONS (2)
  - Pulmonary oedema [Fatal]
  - Lung infection [Fatal]

NARRATIVE: CASE EVENT DATE: 20171006
